FAERS Safety Report 20820979 (Version 2)
Quarter: 2022Q2

REPORT INFORMATION
  Report Type: Spontaneous
  Country: EC (occurrence: EC)
  Receive Date: 20220512
  Receipt Date: 20220516
  Transmission Date: 20220720
  Serious: Yes (Death)
  Sender: FDA-Public Use
  Company Number: EC-NOVARTISPH-NVSC2022EC110243

PATIENT
  Sex: Male

DRUGS (1)
  1. TACROLIMUS [Suspect]
     Active Substance: TACROLIMUS
     Indication: Product used for unknown indication
     Dosage: 4 DOSAGE FORM, QD (1 MG X 50 CAPSULES)
     Route: 065
     Dates: start: 20220421

REACTIONS (1)
  - Death [Fatal]

NARRATIVE: CASE EVENT DATE: 20220506
